FAERS Safety Report 20996792 (Version 6)
Quarter: 2022Q4

REPORT INFORMATION
  Report Type: Report from Study
  Country: CN (occurrence: CN)
  Receive Date: 20220623
  Receipt Date: 20221013
  Transmission Date: 20230113
  Serious: Yes (Death, Life-Threatening, Hospitalization, Other)
  Sender: FDA-Public Use
  Company Number: CN-BRISTOL-MYERS SQUIBB COMPANY-2022-057248

PATIENT
  Age: 77 Year
  Sex: Female
  Weight: 43 kg

DRUGS (25)
  1. PLACEBO [Suspect]
     Active Substance: UNSPECIFIED INGREDIENT
     Indication: Renal cell carcinoma
     Dosage: 1KG/MG Q6W (40 ML)?MOST RECENT DOSE ON 07-APR-2022
     Route: 042
     Dates: start: 20211202, end: 20220407
  2. METHYLCOBALAMIN [Concomitant]
     Active Substance: METHYLCOBALAMIN
     Indication: Product used for unknown indication
     Dosage: ONGOING
     Route: 048
     Dates: start: 20220223
  3. PHOSPHOLIPID [Concomitant]
     Active Substance: PHOSPHOLIPID
     Indication: Product used for unknown indication
     Route: 048
     Dates: start: 20220520, end: 20220527
  4. PHOSPHOLIPID [Concomitant]
     Active Substance: PHOSPHOLIPID
     Dosage: INJECTION
     Route: 065
     Dates: start: 20220524, end: 20220524
  5. VITAMIN B1 [Concomitant]
     Active Substance: THIAMINE HYDROCHLORIDE
     Indication: Product used for unknown indication
     Dosage: 1 DF= 1 UNIT NOS?ONGOING
     Route: 048
     Dates: start: 20220223
  6. SODIUM BICARBONATE [Concomitant]
     Active Substance: SODIUM BICARBONATE
     Indication: Acid-base balance disorder mixed
     Route: 065
     Dates: start: 202206, end: 202206
  7. SODIUM BICARBONATE [Concomitant]
     Active Substance: SODIUM BICARBONATE
     Indication: Electrolyte imbalance
  8. INSULIN NOS [Concomitant]
     Active Substance: INSULIN NOS
     Indication: Product used for unknown indication
     Route: 065
     Dates: start: 202206, end: 202206
  9. FUROSEMIDE [Concomitant]
     Active Substance: FUROSEMIDE
     Indication: Product used for unknown indication
     Route: 065
     Dates: start: 202206, end: 202206
  10. MIDAZOLAM HYDROCHLORIDE [Concomitant]
     Active Substance: MIDAZOLAM HYDROCHLORIDE
     Indication: Product used for unknown indication
     Route: 065
     Dates: start: 202206, end: 202206
  11. FERROUS SUCCINATE TABLETS [Concomitant]
     Indication: Anaemia
     Route: 065
     Dates: start: 202206, end: 202206
  12. ARGININE HYDROCHLORIDE INJECTION [Concomitant]
     Indication: Product used for unknown indication
     Route: 065
     Dates: start: 202206, end: 202206
  13. OMEPRAZOLE SODIUM FOR INJECTION [Concomitant]
     Indication: Product used for unknown indication
     Route: 065
     Dates: start: 202206, end: 202206
  14. SODIUM CHLORIDE [Concomitant]
     Active Substance: SODIUM CHLORIDE
     Indication: Product used for unknown indication
     Route: 065
     Dates: start: 202206, end: 202206
  15. DEXTROSE [Concomitant]
     Active Substance: DEXTROSE
     Indication: Acid-base balance disorder mixed
     Route: 065
     Dates: start: 202206, end: 202206
  16. 50% Glucose injection [Concomitant]
     Indication: Acid-base balance disorder mixed
     Route: 065
     Dates: start: 202206, end: 202206
  17. ALPRAZOLAM [Concomitant]
     Active Substance: ALPRAZOLAM
     Indication: Product used for unknown indication
     Route: 065
     Dates: start: 202206, end: 202206
  18. PIPERAZINE FERULATE TABLETS [Concomitant]
     Indication: Lacunar infarction
     Route: 065
     Dates: start: 202206, end: 202206
  19. ACYCLOVIR [Concomitant]
     Active Substance: ACYCLOVIR
     Indication: Herpes virus infection
     Route: 065
     Dates: start: 202206, end: 202206
  20. CALAMINE LOTION [Concomitant]
     Active Substance: CALAMINE LOTION
     Indication: Herpes virus infection
     Route: 065
     Dates: start: 202206, end: 202206
  21. VITAMIN B6 [Concomitant]
     Active Substance: PYRIDOXINE HYDROCHLORIDE
     Indication: Herpes virus infection
     Route: 065
     Dates: start: 202206, end: 202206
  22. POTASSIUM CHLORIDE [Concomitant]
     Active Substance: POTASSIUM CHLORIDE
     Indication: Acid-base balance disorder mixed
     Route: 065
     Dates: start: 202206, end: 202206
  23. POTASSIUM CHLORIDE [Concomitant]
     Active Substance: POTASSIUM CHLORIDE
     Indication: Electrolyte imbalance
  24. CONCENTRATED SODIUM CHLORIDE INJECTION [Concomitant]
     Indication: Electrolyte imbalance
     Route: 065
     Dates: start: 202206, end: 202206
  25. CONCENTRATED SODIUM CHLORIDE INJECTION [Concomitant]
     Indication: Acid-base balance disorder mixed

REACTIONS (1)
  - Septic shock [Fatal]

NARRATIVE: CASE EVENT DATE: 20220603
